FAERS Safety Report 16558536 (Version 1)
Quarter: 2019Q3

REPORT INFORMATION
  Report Type: Spontaneous
  Country: US (occurrence: US)
  Receive Date: 20190529
  Receipt Date: 20190529
  Transmission Date: 20191004
  Serious: Yes (Hospitalization, Other)
  Sender: FDA-Public Use
  Company Number: None

PATIENT
  Age: 70 Year
  Sex: Female

DRUGS (16)
  1. SILDENAFIL. [Concomitant]
     Active Substance: SILDENAFIL
  2. ALLOPURINOL. [Concomitant]
     Active Substance: ALLOPURINOL
  3. LEVOTHYROXINE. [Concomitant]
     Active Substance: LEVOTHYROXINE
  4. RISPERDAL [Concomitant]
     Active Substance: RISPERIDONE
  5. FERROUS SULFATE. [Concomitant]
     Active Substance: FERROUS SULFATE
  6. PANTOPRAZOLE [Concomitant]
     Active Substance: PANTOPRAZOLE
  7. VAR [Concomitant]
  8. OPSUMIT [Suspect]
     Active Substance: MACITENTAN
     Indication: PULMONARY HYPERTENSION
     Route: 048
     Dates: start: 201712
  9. CALCIUM [Concomitant]
     Active Substance: CALCIUM
  10. VALSARTAN. [Concomitant]
     Active Substance: VALSARTAN
  11. FUROSEMIDE. [Concomitant]
     Active Substance: FUROSEMIDE
  12. SELEXIPAG [Concomitant]
     Active Substance: SELEXIPAG
  13. SPIRONOLACLONE [Concomitant]
  14. ATORVASTATIN [Concomitant]
     Active Substance: ATORVASTATIN
  15. OMEPRAZOLE. [Concomitant]
     Active Substance: OMEPRAZOLE
  16. SPIRIVA [Concomitant]
     Active Substance: TIOTROPIUM BROMIDE MONOHYDRATE

REACTIONS (4)
  - Oedema peripheral [None]
  - Dyspnoea at rest [None]
  - Dyspnoea [None]
  - Gait inability [None]

NARRATIVE: CASE EVENT DATE: 20190430
